FAERS Safety Report 4378170-3 (Version None)
Quarter: 2004Q2

REPORT INFORMATION
  Report Type: 
  Country: None (occurrence: None)
  Receive Date: 20040609
  Receipt Date: 20040526
  Transmission Date: 20050107
  Serious: Yes (Other)
  Sender: FDA-Public Use
  Company Number: USA040568732

PATIENT

DRUGS (1)
  1. XIGRIS [Suspect]
     Indication: SEPSIS
     Dosage: 24 UG/KG/HR/96 HOUR
     Dates: start: 20040524, end: 20040525

REACTIONS (1)
  - INTERNATIONAL NORMALISED RATIO INCREASED [None]
